FAERS Safety Report 16197587 (Version 4)
Quarter: 2019Q2

REPORT INFORMATION
  Report Type: Spontaneous
  Country: US (occurrence: US)
  Receive Date: 20190415
  Receipt Date: 20190610
  Transmission Date: 20190711
  Serious: Yes (Hospitalization, Other)
  Sender: FDA-Public Use
  Company Number: US-PFIZER INC-2019160955

PATIENT
  Age: 64 Year
  Sex: Female

DRUGS (1)
  1. IBRANCE [Suspect]
     Active Substance: PALBOCICLIB
     Indication: BREAST CANCER METASTATIC
     Dosage: 75 MG, UNK

REACTIONS (7)
  - Neutrophil count decreased [Unknown]
  - Malaise [Unknown]
  - Pain [Unknown]
  - White blood cell count decreased [Unknown]
  - Product dose omission [Unknown]
  - Gait disturbance [Unknown]
  - Weight decreased [Unknown]

NARRATIVE: CASE EVENT DATE: 201903
